FAERS Safety Report 16624723 (Version 1)
Quarter: 2019Q3

REPORT INFORMATION
  Report Type: Spontaneous
  Country: FR (occurrence: FR)
  Receive Date: 20190724
  Receipt Date: 20190724
  Transmission Date: 20191004
  Serious: Yes (Other)
  Sender: FDA-Public Use
  Company Number: FR-ROCHE-2361384

PATIENT
  Age: 60 Year
  Sex: Male

DRUGS (11)
  1. CORTICOSTEROIDS [Concomitant]
     Active Substance: CORTICOSTEROID NOS
  2. HEPARIN CALCIUM [Concomitant]
     Active Substance: HEPARIN CALCIUM
     Route: 048
     Dates: start: 20190122, end: 20190228
  3. PARACETAMOL [Concomitant]
     Active Substance: ACETAMINOPHEN
     Route: 048
  4. NORADRENALINE [NOREPINEPHRINE] [Concomitant]
     Active Substance: NOREPINEPHRINE
  5. CYMEVENE [GANCICLOVIR] [Suspect]
     Active Substance: GANCICLOVIR
     Indication: HERPES VIRUS INFECTION
     Route: 042
     Dates: start: 20190216, end: 20190225
  6. ZYVOXID [Concomitant]
     Active Substance: LINEZOLID
     Route: 065
     Dates: start: 20190222, end: 20190228
  7. HEPARIN SODIUM. [Concomitant]
     Active Substance: HEPARIN SODIUM
     Route: 065
     Dates: start: 20190222, end: 20190222
  8. RANITIDINE. [Concomitant]
     Active Substance: RANITIDINE
  9. METHYLPREDNISOLONE HEMISUCCINATE [Concomitant]
     Active Substance: METHYLPREDNISOLONE HEMISUCCINATE
     Route: 042
  10. TAMIFLU [Concomitant]
     Active Substance: OSELTAMIVIR PHOSPHATE
  11. ESOMEPRAZOLE. [Suspect]
     Active Substance: ESOMEPRAZOLE MAGNESIUM
     Indication: PRODUCT USED FOR UNKNOWN INDICATION
     Route: 042
     Dates: start: 20190124, end: 20190301

REACTIONS (3)
  - Intentional product use issue [Unknown]
  - Off label use [Unknown]
  - Thrombocytopenia [Recovered/Resolved]

NARRATIVE: CASE EVENT DATE: 20190222
